FAERS Safety Report 18138761 (Version 1)
Quarter: 2020Q3

REPORT INFORMATION
  Report Type: Spontaneous
  Country: US (occurrence: US)
  Receive Date: 20200811
  Receipt Date: 20200811
  Transmission Date: 20201103
  Serious: No
  Sender: FDA-Public Use
  Company Number: None

PATIENT
  Sex: Female

DRUGS (2)
  1. OXYBUTYNIN 5MG [Suspect]
     Active Substance: OXYBUTYNIN
  2. TROSPIUM [Suspect]
     Active Substance: TROSPIUM

REACTIONS (1)
  - Treatment failure [None]
